FAERS Safety Report 21667601 (Version 1)
Quarter: 2022Q4

REPORT INFORMATION
  Report Type: Spontaneous
  Country: US (occurrence: None)
  Receive Date: 20221130
  Receipt Date: 20221130
  Transmission Date: 20230112
  Serious: No
  Sender: FDA-Public Use
  Company Number: None

PATIENT
  Sex: Female

DRUGS (6)
  1. AMBRISENTAN [Suspect]
     Active Substance: AMBRISENTAN
     Indication: Pulmonary arterial hypertension
     Dosage: FREQUENCY : DAILY;?
     Route: 048
  2. FOLIC ACID [Concomitant]
     Active Substance: FOLIC ACID
  3. SILDENAFIL [Concomitant]
     Active Substance: SILDENAFIL
  4. RENVELA [Concomitant]
     Active Substance: SEVELAMER CARBONATE
  5. BENADRYL ALLERGY [Concomitant]
     Active Substance: DIPHENHYDRAMINE HYDROCHLORIDE
  6. TYVASO DPI MAINTENANCE KI [Concomitant]

REACTIONS (3)
  - Dialysis [None]
  - Therapy interrupted [None]
  - Fatigue [None]
